FAERS Safety Report 16404127 (Version 1)
Quarter: 2019Q2

REPORT INFORMATION
  Report Type: Spontaneous
  Country: US (occurrence: US)
  Receive Date: 20190607
  Receipt Date: 20190607
  Transmission Date: 20190711
  Serious: No
  Sender: FDA-Public Use
  Company Number: US-ALLERGAN-1856423US

PATIENT
  Sex: Female

DRUGS (1)
  1. BENTYL [Suspect]
     Active Substance: DICYCLOMINE HYDROCHLORIDE
     Indication: ABDOMINAL PAIN UPPER
     Dosage: UNK UNK, SINGLE
     Route: 065

REACTIONS (2)
  - Feeling abnormal [Recovered/Resolved]
  - Off label use [Unknown]
